FAERS Safety Report 4332887-5 (Version None)
Quarter: 2004Q1

REPORT INFORMATION
  Report Type: 
  Country: None (occurrence: None)
  Receive Date: 20040330
  Receipt Date: 20040317
  Transmission Date: 20041129
  Serious: Yes (Life-Threatening, Hospitalization)
  Sender: FDA-Public Use
  Company Number: 2004204192US

PATIENT
  Age: 11 Year
  Sex: Male

DRUGS (6)
  1. VINCRISTINE SULFATE [Suspect]
     Indication: ACUTE LYMPHOCYTIC LEUKAEMIA
  2. METHOTREXATE [Suspect]
     Indication: ACUTE LYMPHOCYTIC LEUKAEMIA
  3. DAUNOBLASTIN RD (DAUNORUBICIN HYDROCHLORIDE) POWDER, STERILE [Suspect]
     Indication: ACUTE LYMPHOCYTIC LEUKAEMIA
  4. DELTASONE [Suspect]
     Indication: ACUTE LYMPHOCYTIC LEUKAEMIA
  5. CEFTAZIDIME SODIUM [Concomitant]
  6. OXACILLIN [Concomitant]

REACTIONS (10)
  - ASCITES [None]
  - CANDIDIASIS [None]
  - ENTEROCOLITIS [None]
  - GASTROINTESTINAL NECROSIS [None]
  - GRAM STAIN POSITIVE [None]
  - HAEMATOCRIT DECREASED [None]
  - LYMPHOCYTIC INFILTRATION [None]
  - MUCOSAL HAEMORRHAGE [None]
  - MUCOSAL ULCERATION [None]
  - PYREXIA [None]
